FAERS Safety Report 17686165 (Version 2)
Quarter: 2020Q2

REPORT INFORMATION
  Report Type: Report from Study
  Country: IN (occurrence: IN)
  Receive Date: 20200420
  Receipt Date: 20200508
  Transmission Date: 20200714
  Serious: Yes (Other)
  Sender: FDA-Public Use
  Company Number: NVSC2020IN092781

PATIENT
  Age: 48 Year
  Sex: Male
  Weight: 75 kg

DRUGS (2)
  1. GALVUS MET [Suspect]
     Active Substance: METFORMIN HYDROCHLORIDE\VILDAGLIPTIN
     Indication: DIABETES MELLITUS
     Dosage: 1 DF, BID (1-0-1, PRE MEAL) (50/500)
     Route: 048
     Dates: start: 2014
  2. AMARYL [Concomitant]
     Active Substance: GLIMEPIRIDE
     Indication: DIABETES MELLITUS
     Dosage: 1 DF, QD (1-0-0, PRE MEAL)
     Route: 048

REACTIONS (3)
  - Neuropathy peripheral [Not Recovered/Not Resolved]
  - Obesity [Unknown]
  - Pharyngitis [Unknown]

NARRATIVE: CASE EVENT DATE: 20200505
